FAERS Safety Report 8845564 (Version 1)
Quarter: 2012Q4

REPORT INFORMATION
  Report Type: 
  Country: AU (occurrence: AU)
  Receive Date: 20121017
  Receipt Date: 20121017
  Transmission Date: 20130627
  Serious: Yes (Other)
  Sender: FDA-Public Use
  Company Number: PHHY2012AU075419

PATIENT
  Age: 81 Year
  Sex: Female

DRUGS (2)
  1. ACLASTA [Suspect]
     Dosage: 5 mg, UNK
     Route: 042
     Dates: start: 20100831
  2. ACLASTA [Suspect]
     Dosage: 5 mg, UNK
     Route: 042
     Dates: start: 20110914

REACTIONS (5)
  - Atrial fibrillation [Recovered/Resolved]
  - Heart rate irregular [Unknown]
  - Palpitations [Recovered/Resolved]
  - Bradyarrhythmia [Recovered/Resolved]
  - Bradycardia [Unknown]
